FAERS Safety Report 25218410 (Version 1)
Quarter: 2025Q2

REPORT INFORMATION
  Report Type: Report from Study
  Country: CA (occurrence: CA)
  Receive Date: 20250421
  Receipt Date: 20250421
  Transmission Date: 20250717
  Serious: Yes (Hospitalization)
  Sender: TAKEDA
  Company Number: CA-TAKEDA-2025TUS034329

PATIENT
  Sex: Female

DRUGS (4)
  1. VEDOLIZUMAB [Suspect]
     Active Substance: VEDOLIZUMAB
     Indication: Crohn^s disease
  2. CITALOPRAM [Concomitant]
     Active Substance: CITALOPRAM
     Indication: Anxiety
  3. VITAMIN B12 [Concomitant]
     Active Substance: CYANOCOBALAMIN
  4. PREGABALIN [Concomitant]
     Active Substance: PREGABALIN

REACTIONS (6)
  - Urinary tract infection [Unknown]
  - Fall [Unknown]
  - Tremor [Unknown]
  - Swollen tongue [Unknown]
  - Dysphagia [Unknown]
  - Feeding disorder [Unknown]
